FAERS Safety Report 6746730-8 (Version None)
Quarter: 2010Q2

REPORT INFORMATION
  Report Type: 
  Country: None (occurrence: None)
  Receive Date: 20100528
  Receipt Date: 20090723
  Transmission Date: 20101027
  Serious: No
  Sender: FDA-Public Use
  Company Number: A0788584A

PATIENT
  Age: 71 Year
  Sex: Female

DRUGS (6)
  1. VENTOLIN [Suspect]
     Indication: EMPHYSEMA
     Route: 055
     Dates: start: 20090301
  2. ADVAIR DISKUS 100/50 [Concomitant]
  3. SPIRIVA [Concomitant]
  4. VITAMINS [Concomitant]
  5. CALCIUM CARBONATE [Concomitant]
  6. VITAMIN C [Concomitant]

REACTIONS (2)
  - DRUG INEFFECTIVE [None]
  - PRODUCT QUALITY ISSUE [None]
